FAERS Safety Report 9781673 (Version 1)
Quarter: 2013Q4

REPORT INFORMATION
  Report Type: Spontaneous
  Country: US (occurrence: US)
  Receive Date: 20131224
  Receipt Date: 20131224
  Transmission Date: 20140711
  Serious: Yes (Hospitalization)
  Sender: FDA-Public Use
  Company Number: US-BRISTOL-MYERS SQUIBB COMPANY-19919968

PATIENT
  Age: 60 Year
  Sex: Male
  Weight: 132.88 kg

DRUGS (3)
  1. BYDUREON 2MG SUSPENSION [Suspect]
     Indication: TYPE 2 DIABETES MELLITUS
     Route: 058
     Dates: start: 20131206
  2. GLYBURIDE [Concomitant]
  3. METFORMIN [Concomitant]

REACTIONS (1)
  - Cardiac failure congestive [Recovering/Resolving]
